FAERS Safety Report 5256849-9 (Version None)
Quarter: 2007Q1

REPORT INFORMATION
  Report Type: 
  Country: None (occurrence: None)
  Receive Date: 20070306
  Receipt Date: 20070222
  Transmission Date: 20070707
  Serious: Yes (Other)
  Sender: FDA-Public Use
  Company Number: PR-SHR-PR-2007-005111

PATIENT
  Age: 36 Year
  Sex: Female
  Weight: 49.887 kg

DRUGS (6)
  1. BETASERON [Suspect]
     Indication: SECONDARY PROGRESSIVE MULTIPLE SCLEROSIS
     Dosage: 8 MIU, EVERY 2D
     Route: 058
     Dates: start: 20030203
  2. ZANAFLEX [Concomitant]
     Dosage: 4 MG/D, UNK
     Route: 048
     Dates: start: 20061001
  3. NEURONTIN [Concomitant]
     Indication: PAIN
     Dosage: 300 MG/D, UNK
     Route: 048
     Dates: start: 20060301
  4. TIZANIDINE HCL [Concomitant]
     Dosage: 4 MG/D, UNK
     Route: 048
  5. CIPRO [Concomitant]
     Dosage: 500 MG/D, UNK
     Route: 048
  6. CORTICOSTEROIDS [Concomitant]
     Dates: start: 20060101

REACTIONS (10)
  - ABDOMINAL MASS [None]
  - CHILLS [None]
  - DEVICE FAILURE [None]
  - DRUG ADMINISTRATION ERROR [None]
  - EPISTAXIS [None]
  - INJECTION SITE BRUISING [None]
  - INJECTION SITE HAEMORRHAGE [None]
  - INJECTION SITE PAIN [None]
  - MULTIPLE SCLEROSIS [None]
  - PARAESTHESIA [None]
